APPROVED DRUG PRODUCT: OLOPATADINE HYDROCHLORIDE
Active Ingredient: OLOPATADINE HYDROCHLORIDE
Strength: EQ 0.2% BASE
Dosage Form/Route: SOLUTION/DROPS;OPHTHALMIC
Application: A219557 | Product #001
Applicant: GLENMARK PHARMACEUTICALS INC USA
Approved: Feb 28, 2025 | RLD: No | RS: No | Type: OTC